FAERS Safety Report 10275694 (Version 1)
Quarter: 2014Q3

REPORT INFORMATION
  Report Type: Spontaneous
  Country: US (occurrence: US)
  Receive Date: 20140703
  Receipt Date: 20140703
  Transmission Date: 20150326
  Serious: No
  Sender: FDA-Public Use
  Company Number: US-BAYER-2014-099378

PATIENT
  Age: 58 Year
  Sex: Female
  Weight: 104 kg

DRUGS (7)
  1. ALEVE [Suspect]
     Active Substance: NAPROXEN SODIUM
     Indication: BACK PAIN
  2. BAYER GENUINE ASPIRIN [Suspect]
     Active Substance: ASPIRIN
     Indication: BACK PAIN
  3. ALEVE [Suspect]
     Active Substance: NAPROXEN SODIUM
     Indication: PAIN
     Dosage: 2 DF, QOD
     Route: 048
  4. BAYER GENUINE ASPIRIN [Suspect]
     Active Substance: ASPIRIN
     Indication: NECK PAIN
  5. OMEPRAZOLE. [Concomitant]
     Active Substance: OMEPRAZOLE
  6. ALEVE [Suspect]
     Active Substance: NAPROXEN SODIUM
     Indication: NECK PAIN
  7. BAYER GENUINE ASPIRIN [Suspect]
     Active Substance: ASPIRIN
     Indication: PAIN
     Dosage: 2 DF, QOD
     Route: 048

REACTIONS (3)
  - Expired product administered [None]
  - Pruritus [Recovered/Resolved]
  - Urticaria [Recovered/Resolved]

NARRATIVE: CASE EVENT DATE: 201406
